FAERS Safety Report 25509309 (Version 1)
Quarter: 2025Q3

REPORT INFORMATION
  Report Type: Spontaneous
  Country: US (occurrence: US)
  Receive Date: 20250703
  Receipt Date: 20250703
  Transmission Date: 20251021
  Serious: No
  Sender: PFIZER
  Company Number: US-PFIZER INC-202500133280

PATIENT
  Age: 18 Year
  Sex: Female

DRUGS (1)
  1. RIMEGEPANT [Suspect]
     Active Substance: RIMEGEPANT
     Indication: Migraine
     Dates: end: 20250416

REACTIONS (7)
  - Muscle fatigue [Recovering/Resolving]
  - Tremor [Recovering/Resolving]
  - Adverse food reaction [Recovering/Resolving]
  - Environmental exposure [Recovering/Resolving]
  - Arthralgia [Recovering/Resolving]
  - Hypoaesthesia [Recovering/Resolving]
  - Paraesthesia [Recovering/Resolving]
